FAERS Safety Report 18306454 (Version 1)
Quarter: 2020Q3

REPORT INFORMATION
  Report Type: Spontaneous
  Country: US (occurrence: US)
  Receive Date: 20200923
  Receipt Date: 20200923
  Transmission Date: 20201103
  Serious: Yes (Hospitalization)
  Sender: FDA-Public Use
  Company Number: None

PATIENT
  Age: 65 Year
  Sex: Male

DRUGS (1)
  1. DARATUMUMAB (DARATUMUMAB 20MG/ML INJ, SOLN) [Suspect]
     Active Substance: DARATUMUMAB
     Indication: PLASMA CELL MYELOMA
     Route: 042
     Dates: start: 20200825, end: 20200825

REACTIONS (7)
  - Dyspnoea [None]
  - Rhinorrhoea [None]
  - Sneezing [None]
  - Infusion related reaction [None]
  - Nasal congestion [None]
  - Oropharyngeal pain [None]
  - Pleuritic pain [None]

NARRATIVE: CASE EVENT DATE: 20200825
